FAERS Safety Report 8569655-4 (Version None)
Quarter: 2012Q3

REPORT INFORMATION
  Report Type: 
  Country: None (occurrence: None)
  Receive Date: 20120803
  Receipt Date: 20120411
  Transmission Date: 20120928
  Serious: No
  Sender: FDA-Public Use
  Company Number: US-ABBOTT-12P-163-0924646-00

PATIENT
  Sex: Female

DRUGS (2)
  1. TRILIPIX [Concomitant]
     Indication: PRODUCT USED FOR UNKNOWN INDICATION
  2. NIASPAN [Suspect]
     Indication: LIPIDS ABNORMAL
     Dates: start: 20120410

REACTIONS (6)
  - SWELLING FACE [None]
  - PRURITUS [None]
  - SKIN BURNING SENSATION [None]
  - HEADACHE [None]
  - SKIN WARM [None]
  - CHILLS [None]
